FAERS Safety Report 6115314-7 (Version None)
Quarter: 2009Q1

REPORT INFORMATION
  Report Type: 
  Country: None (occurrence: None)
  Receive Date: 20090313
  Receipt Date: 20090304
  Transmission Date: 20090719
  Serious: Yes (Hospitalization)
  Sender: FDA-Public Use
  Company Number: GB-ROCHE-618827

PATIENT
  Sex: Female
  Weight: 86.2 kg

DRUGS (3)
  1. ORLISTAT [Suspect]
     Indication: OBESITY
     Route: 048
     Dates: start: 20080819, end: 20090204
  2. SIMVASTATIN [Concomitant]
     Route: 048
  3. METFORMIN HCL [Concomitant]
     Route: 048

REACTIONS (1)
  - NEPHROLITHIASIS [None]
